FAERS Safety Report 8592619-1 (Version None)
Quarter: 2012Q3

REPORT INFORMATION
  Report Type: 
  Country: None (occurrence: None)
  Receive Date: 20120814
  Receipt Date: 20120806
  Transmission Date: 20120928
  Serious: Yes (Hospitalization)
  Sender: FDA-Public Use
  Company Number: US-ACTELION-A-US2012-65214

PATIENT
  Age: 62 Year
  Sex: Female

DRUGS (4)
  1. REMODULIN [Suspect]
  2. EPOPROSTENOL SODIUM [Suspect]
     Indication: PULMONARY ARTERIAL HYPERTENSION
     Dosage: 28 NG/KG, PER MIN
     Route: 042
     Dates: start: 20110329
  3. DIURETICS [Concomitant]
  4. ADCIRCA [Concomitant]

REACTIONS (8)
  - NAUSEA [None]
  - GASTRIC HAEMORRHAGE [None]
  - DYSPNOEA [None]
  - HAEMATOCRIT DECREASED [None]
  - THROMBOCYTOPENIA [None]
  - HAEMOGLOBIN DECREASED [None]
  - VOMITING [None]
  - ANAEMIA [None]
